FAERS Safety Report 19871184 (Version 1)
Quarter: 2021Q3

REPORT INFORMATION
  Report Type: Spontaneous
  Country: FR (occurrence: FR)
  Receive Date: 20210923
  Receipt Date: 20210923
  Transmission Date: 20211014
  Serious: Yes (Hospitalization, Other)
  Sender: FDA-Public Use
  Company Number: FR-AUROBINDO-AUR-APL-2021-039554

PATIENT
  Age: 77 Year
  Sex: Female

DRUGS (8)
  1. VALACICLOVIR [Suspect]
     Active Substance: VALACYCLOVIR HYDROCHLORIDE
     Indication: ANTI-INFECTIVE THERAPY
     Dosage: 1 GRAM, ONCE A DAY
     Route: 048
     Dates: start: 20210717
  2. LASILIX [Suspect]
     Active Substance: FUROSEMIDE
     Indication: OEDEMA
     Dosage: 40 MILLIGRAM, ONCE A DAY
     Route: 048
     Dates: start: 202107
  3. FENTANYL. [Suspect]
     Active Substance: FENTANYL
     Indication: OEDEMA
     Dosage: 12 MICROGRAM, ONCE A DAY
     Route: 062
     Dates: start: 20210730
  4. TRAMADOL. [Suspect]
     Active Substance: TRAMADOL
     Indication: PAIN
     Dosage: 50 MILLIGRAM, 3 TIMES (AS NECESSARY)
     Route: 048
     Dates: start: 20210708, end: 20210805
  5. BINOCRIT [Suspect]
     Active Substance: ERYTHROPOIETIN
     Indication: ANAEMIA
     Dosage: 1 DOSAGE FORM, EVERY WEEK
     Route: 058
     Dates: start: 20210705, end: 20210805
  6. DARATUMUMAB [Suspect]
     Active Substance: DARATUMUMAB
     Indication: PLASMA CELL MYELOMA
     Dosage: 1800 MILLIGRAM, EVERY WEEK
     Route: 058
     Dates: start: 20210705
  7. VELCADE [Suspect]
     Active Substance: BORTEZOMIB
     Indication: PLASMA CELL MYELOMA
     Dosage: 14 MILLIGRAM
     Route: 058
     Dates: start: 20210705, end: 20210810
  8. DEXAMETHASONE. [Suspect]
     Active Substance: DEXAMETHASONE
     Indication: PLASMA CELL MYELOMA
     Dosage: 9.5 MILLIGRAM, ONCE A DAY
     Route: 048
     Dates: start: 20210705, end: 20210818

REACTIONS (2)
  - Ejection fraction decreased [Not Recovered/Not Resolved]
  - Atrial fibrillation [Not Recovered/Not Resolved]

NARRATIVE: CASE EVENT DATE: 20210802
